FAERS Safety Report 6713060-X (Version None)
Quarter: 2010Q2

REPORT INFORMATION
  Report Type: 
  Country: None (occurrence: None)
  Receive Date: 20100504
  Receipt Date: 20100423
  Transmission Date: 20101027
  Serious: Yes (Hospitalization)
  Sender: FDA-Public Use
  Company Number: 2009SP035000

PATIENT
  Age: 17 Year
  Sex: Female
  Weight: 37.4 kg

DRUGS (7)
  1. REMERON [Suspect]
     Indication: DEPRESSION
     Dosage: 15 MG;QD;PO
     Route: 048
     Dates: start: 20091007, end: 20091016
  2. REMERON [Suspect]
     Indication: INSOMNIA
     Dosage: 15 MG;QD;PO
     Route: 048
     Dates: start: 20091007, end: 20091016
  3. DEPROMEL [Concomitant]
  4. MAGMITT [Concomitant]
  5. RIZE [Concomitant]
  6. LULLAN [Concomitant]
  7. PARLODEL [Concomitant]

REACTIONS (3)
  - AKATHISIA [None]
  - CHEST DISCOMFORT [None]
  - DRUG INTERACTION [None]
